FAERS Safety Report 21370752 (Version 1)
Quarter: 2022Q3

REPORT INFORMATION
  Report Type: Report from Study
  Country: US (occurrence: None)
  Receive Date: 20220923
  Receipt Date: 20220923
  Transmission Date: 20221027
  Serious: Yes (Hospitalization)
  Sender: FDA-Public Use
  Company Number: US-Eisai Medical Research-EC-2022-123518

PATIENT
  Age: 68 Year
  Sex: Male

DRUGS (6)
  1. LENVIMA [Suspect]
     Active Substance: LENVATINIB
     Indication: Hepatic cirrhosis
     Route: 048
     Dates: start: 20220816, end: 202208
  2. LENVIMA [Suspect]
     Active Substance: LENVATINIB
     Indication: Hepatic cancer
     Route: 048
     Dates: start: 202208
  3. LIVER SUPPORT [Concomitant]
  4. VITAMIN D [Concomitant]
     Active Substance: VITAMIN D NOS
  5. VITAMIN B COMPLEX [Concomitant]
     Active Substance: CYANOCOBALAMIN\DEXPANTHENOL\NIACINAMIDE\PYRIDOXINE HYDROCHLORIDE\RIBOFLAVIN 5^-PHOSPHATE SODIUM\THIA
  6. URSODIOL [Concomitant]
     Active Substance: URSODIOL

REACTIONS (7)
  - Abdominal distension [Unknown]
  - Dyspnoea [Unknown]
  - Dry mouth [Unknown]
  - Constipation [Unknown]
  - Blood bilirubin increased [Unknown]
  - Visual impairment [Unknown]
  - Dry skin [Unknown]

NARRATIVE: CASE EVENT DATE: 20220801
